FAERS Safety Report 14760721 (Version 1)
Quarter: 2018Q2

REPORT INFORMATION
  Report Type: Report from Study
  Country: BR (occurrence: BR)
  Receive Date: 20180414
  Receipt Date: 20180414
  Transmission Date: 20180711
  Serious: Yes (Other)
  Sender: FDA-Public Use
  Company Number: BR-TAKEDA-2017TUS018012

PATIENT
  Age: 47 Year
  Sex: Female

DRUGS (4)
  1. METICORTEN [Concomitant]
     Active Substance: PREDNISONE
     Indication: COLITIS
     Dosage: 30 MG, QD
     Route: 048
     Dates: start: 20170614
  2. VEDOLIZUMAB [Suspect]
     Active Substance: VEDOLIZUMAB
     Indication: COLITIS
     Dosage: UNK
     Route: 042
     Dates: start: 20170811
  3. OMEPRAZOLE. [Concomitant]
     Active Substance: OMEPRAZOLE
     Indication: PROPHYLAXIS
     Dosage: 20 MG, BID
     Route: 048
     Dates: start: 20170614
  4. PENTASA [Concomitant]
     Active Substance: MESALAMINE
     Indication: COLITIS
     Dosage: 2 G, BID
     Route: 048
     Dates: start: 20170614

REACTIONS (6)
  - Lobular breast carcinoma in situ [Unknown]
  - Constipation [Recovered/Resolved]
  - Gastrointestinal pain [Recovered/Resolved]
  - Arthralgia [Recovered/Resolved]
  - Headache [Recovered/Resolved]
  - Bone pain [Not Recovered/Not Resolved]

NARRATIVE: CASE EVENT DATE: 20170811
